FAERS Safety Report 5239419-8 (Version None)
Quarter: 2007Q1

REPORT INFORMATION
  Report Type: 
  Country: None (occurrence: None)
  Receive Date: 20070216
  Receipt Date: 20070206
  Transmission Date: 20070707
  Serious: Yes (Other)
  Sender: FDA-Public Use
  Company Number: US-AMGEN-STX205529

PATIENT
  Sex: Female
  Weight: 58.1 kg

DRUGS (7)
  1. ENBREL [Suspect]
     Indication: ANKYLOSING SPONDYLITIS
     Route: 058
     Dates: start: 20060101, end: 20061218
  2. SINGULAIR [Concomitant]
  3. ASACOL [Concomitant]
  4. AMBIEN [Concomitant]
  5. VITAMIN CAP [Concomitant]
  6. CALCIUM [Concomitant]
  7. TRAMADOL HCL [Concomitant]

REACTIONS (1)
  - CHOROID MELANOMA [None]
